FAERS Safety Report 13053447 (Version 1)
Quarter: 2016Q4

REPORT INFORMATION
  Report Type: Spontaneous
  Country: US (occurrence: US)
  Receive Date: 20161222
  Receipt Date: 20161222
  Transmission Date: 20170207
  Serious: No
  Sender: FDA-Public Use
  Company Number: US-009507513-1612USA003217

PATIENT
  Sex: Female
  Weight: 114.74 kg

DRUGS (1)
  1. NEXPLANON [Suspect]
     Active Substance: ETONOGESTREL
     Dosage: 68 MG/1 ROD EVERY 3 YEARS, ARM
     Route: 059

REACTIONS (2)
  - Device difficult to use [Unknown]
  - No adverse event [Unknown]
